FAERS Safety Report 4550682-9 (Version None)
Quarter: 2004Q4

REPORT INFORMATION
  Report Type: 
  Country: None (occurrence: None)
  Receive Date: 20041217
  Receipt Date: 20041025
  Transmission Date: 20050328
  Serious: No
  Sender: FDA-Public Use
  Company Number: 2004-BP-10863BP

PATIENT
  Age: 73 Year
  Sex: Male
  Weight: 79.4 kg

DRUGS (6)
  1. SPIRIVA [Suspect]
     Indication: CHRONIC OBSTRUCTIVE AIRWAYS DISEASE
     Dosage: 18 MG (18 MG) IH
     Route: 055
  2. ADVAIR (SERETIDE MITE) [Concomitant]
  3. ACCOLATE [Concomitant]
  4. DIGOXIN [Concomitant]
  5. FOSAMAX [Concomitant]
  6. BEXTRA [Concomitant]

REACTIONS (3)
  - DYSPNOEA [None]
  - PRODUCTIVE COUGH [None]
  - RHINORRHOEA [None]
